FAERS Safety Report 5314008-5 (Version None)
Quarter: 2007Q2

REPORT INFORMATION
  Report Type: 
  Country: None (occurrence: None)
  Receive Date: 20070501
  Receipt Date: 20070420
  Transmission Date: 20071010
  Serious: Yes (Other)
  Sender: FDA-Public Use
  Company Number: US-ELI_LILLY_AND_COMPANY-US200704004685

PATIENT
  Sex: Female

DRUGS (1)
  1. HUMULIN N [Suspect]

REACTIONS (2)
  - ACCIDENT [None]
  - PARALYSIS [None]
